FAERS Safety Report 10922935 (Version 2)
Quarter: 2015Q1

REPORT INFORMATION
  Report Type: Spontaneous
  Country: JP (occurrence: JP)
  Receive Date: 20150317
  Receipt Date: 20150324
  Transmission Date: 20150721
  Serious: No
  Sender: FDA-Public Use
  Company Number: JP-PFIZER INC-2015079828

PATIENT
  Age: 8 Decade
  Sex: Male

DRUGS (3)
  1. INLYTA [Suspect]
     Active Substance: AXITINIB
     Indication: RENAL CELL CARCINOMA
     Dosage: UNK
     Route: 048
     Dates: start: 20130401
  2. INLYTA [Suspect]
     Active Substance: AXITINIB
     Dosage: UNK, 2 WEEKS ON FOLLOWED BY 2 WEEKS OFF
  3. INLYTA [Suspect]
     Active Substance: AXITINIB
     Dosage: UNK, 2 WEEKS ON FOLLOWED BY 1 WEEK OFF
     Dates: start: 20130610

REACTIONS (1)
  - Fatigue [Recovering/Resolving]
